FAERS Safety Report 21234867 (Version 1)
Quarter: 2022Q3

REPORT INFORMATION
  Report Type: Report from Study
  Country: BR (occurrence: BR)
  Receive Date: 20220820
  Receipt Date: 20220820
  Transmission Date: 20221027
  Serious: Yes (Hospitalization)
  Sender: FDA-Public Use
  Company Number: BR-TAKEDA-2022TUS057661

PATIENT
  Age: 35 Year
  Sex: Female

DRUGS (9)
  1. ICATIBANT [Suspect]
     Active Substance: ICATIBANT ACETATE
     Indication: Hereditary angioedema
     Dosage: UNK
     Route: 065
     Dates: start: 201102
  2. ICATIBANT [Suspect]
     Active Substance: ICATIBANT ACETATE
     Indication: Hereditary angioedema
     Dosage: UNK
     Route: 065
     Dates: start: 201102
  3. ICATIBANT [Suspect]
     Active Substance: ICATIBANT ACETATE
     Dosage: UNK
     Route: 065
     Dates: start: 20150516
  4. ICATIBANT [Suspect]
     Active Substance: ICATIBANT ACETATE
     Dosage: UNK
     Route: 065
     Dates: start: 20150516
  5. ACIDO TRANEXAMICO [Concomitant]
     Dosage: 75 MILLIGRAM
     Route: 048
     Dates: start: 20150101
  6. TRANEXAMIC ACID [Concomitant]
     Active Substance: TRANEXAMIC ACID
     Dosage: 250 MILLIGRAM, QID
     Route: 048
     Dates: start: 20150101
  7. ARACELI [Concomitant]
     Dosage: 75 MILLIGRAM
     Route: 048
     Dates: start: 20150501, end: 20151229
  8. DESOGESTREL [Concomitant]
     Active Substance: DESOGESTREL
     Dosage: 75 MICROGRAM, QD
     Route: 048
     Dates: start: 20150513, end: 20151229
  9. DANAZOL [Concomitant]
     Active Substance: DANAZOL
     Dosage: 100 MILLIGRAM
     Route: 048
     Dates: start: 20160104

REACTIONS (1)
  - Abdominal pain [Recovered/Resolved]

NARRATIVE: CASE EVENT DATE: 20151002
